FAERS Safety Report 19372515 (Version 1)
Quarter: 2021Q2

REPORT INFORMATION
  Report Type: Spontaneous
  Country: US (occurrence: US)
  Receive Date: 20210604
  Receipt Date: 20210604
  Transmission Date: 20210717
  Serious: Yes (Hospitalization)
  Sender: FDA-Public Use
  Company Number: None

PATIENT
  Age: 73 Year
  Sex: Male
  Weight: 61.3 kg

DRUGS (11)
  1. MAGNESIUM OXIDE 400MG [Concomitant]
     Active Substance: MAGNESIUM OXIDE
  2. PROPRANOLOL [Concomitant]
     Active Substance: PROPRANOLOL HYDROCHLORIDE
  3. BUPROPION HCI 150MG [Concomitant]
  4. SUMATRIPTAN 100MG [Concomitant]
     Active Substance: SUMATRIPTAN
  5. TAXOL [Suspect]
     Active Substance: PACLITAXEL
     Dates: end: 20210419
  6. CARBOPLATIN. [Suspect]
     Active Substance: CARBOPLATIN
     Dates: end: 20210419
  7. SAXAGLIPTIN HCI 5MG [Concomitant]
  8. METFORMIN [Concomitant]
     Active Substance: METFORMIN HYDROCHLORIDE
  9. PIOGLITAZONE 30MG [Concomitant]
     Active Substance: PIOGLITAZONE
  10. ALBUTEROL SULFATE HFA [Concomitant]
     Active Substance: ALBUTEROL SULFATE
  11. TOPIRAMATE 25MG [Concomitant]
     Active Substance: TOPIRAMATE

REACTIONS (3)
  - Oesophagitis [None]
  - Dysphagia [None]
  - Pneumonia [None]

NARRATIVE: CASE EVENT DATE: 20210506
